FAERS Safety Report 8762637 (Version 2)
Quarter: 2012Q4

REPORT INFORMATION
  Report Type: Report from Study
  Country: CA (occurrence: CA)
  Receive Date: 20120830
  Receipt Date: 20121019
  Transmission Date: 20130627
  Serious: Yes (Life-Threatening, Hospitalization)
  Sender: FDA-Public Use
  Company Number: CA-ROCHE-772143

PATIENT
  Age: 63 Year
  Sex: Female
  Weight: 56.3 kg

DRUGS (6)
  1. TOCILIZUMAB [Suspect]
     Indication: RHEUMATOID ARTHRITIS
     Dosage: DATE OF LAST DOSE PRIOR TO SAE: 12 APRIL 2011,ROUTE BLINDED
     Route: 058
  2. TOCILIZUMAB [Suspect]
     Indication: RHEUMATOID ARTHRITIS
     Dosage: DATE OF LAST DOE PRIOR TO SAE: 05 APRIL 2011, ROUTE BLINDED,
     Route: 042
  3. CELEBREX [Concomitant]
     Indication: RHEUMATOID ARTHRITIS
     Route: 048
     Dates: start: 201008
  4. TYLENOL [Concomitant]
     Indication: RHEUMATOID ARTHRITIS
     Route: 048
     Dates: start: 2000
  5. SULFASALAZINE [Concomitant]
     Indication: RHEUMATOID ARTHRITIS
     Route: 048
     Dates: start: 20110316
  6. DILANTIN [Concomitant]
     Route: 048
     Dates: start: 20110417

REACTIONS (1)
  - Brain neoplasm malignant [Not Recovered/Not Resolved]
